FAERS Safety Report 25757702 (Version 1)
Quarter: 2025Q3

REPORT INFORMATION
  Report Type: Report from Study
  Country: EU (occurrence: EU)
  Receive Date: 20250903
  Receipt Date: 20250903
  Transmission Date: 20251021
  Serious: Yes (Hospitalization, Other)
  Sender: MYLAN
  Company Number: EU-SA-2025SA237920

PATIENT
  Age: 70 Year
  Sex: Male
  Weight: 58.5 kg

DRUGS (9)
  1. DEXAMETHASONE [Suspect]
     Active Substance: DEXAMETHASONE
     Indication: Plasma cell myeloma refractory
     Dosage: 40 MILLIGRAM, QW (BIW)
     Dates: start: 20240115, end: 20240205
  2. DEXAMETHASONE [Suspect]
     Active Substance: DEXAMETHASONE
     Dosage: 40 MILLIGRAM, QW (20 MG BIW)
     Dates: start: 20240212, end: 20240402
  3. DEXAMETHASONE [Suspect]
     Active Substance: DEXAMETHASONE
     Dosage: 40 MILLIGRAM, QW (20 MG, QOW)
     Dates: start: 20240311, end: 20240326
  4. ISATUXIMAB [Suspect]
     Active Substance: ISATUXIMAB
     Indication: Plasma cell myeloma refractory
     Dosage: 680 MILLIGRAM, QW
     Dates: start: 20240115, end: 20240205
  5. ISATUXIMAB [Suspect]
     Active Substance: ISATUXIMAB
     Dosage: 680 MILLIGRAM, BIWEEKLY (QOW)
     Dates: start: 20240212, end: 20240226
  6. ISATUXIMAB [Suspect]
     Active Substance: ISATUXIMAB
     Dosage: 680 MILLIGRAM, BIWEEKLY (QOW)
     Dates: start: 20240311, end: 20240325
  7. CARFILZOMIB [Suspect]
     Active Substance: CARFILZOMIB
     Indication: Plasma cell myeloma refractory
     Dosage: 76 MILLIGRAM, QW (38 MG, BIW)
     Dates: start: 20240115, end: 20240130
  8. CARFILZOMIB [Suspect]
     Active Substance: CARFILZOMIB
     Dosage: 208 MILLIGRAM, QW (104 MG, BIW)
     Dates: start: 20240212, end: 20240227
  9. CARFILZOMIB [Suspect]
     Active Substance: CARFILZOMIB
     Dosage: 208 MILLIGRAM, QW (104 MG, BIW)
     Dates: start: 20240311, end: 20240326

REACTIONS (2)
  - Pneumonitis [Recovered/Resolved]
  - Sepsis [Recovered/Resolved with Sequelae]

NARRATIVE: CASE EVENT DATE: 20240606
